FAERS Safety Report 8899692 (Version 1)
Quarter: 2012Q4

REPORT INFORMATION
  Report Type: 
  Country: US (occurrence: US)
  Receive Date: 20121108
  Receipt Date: 20121108
  Transmission Date: 20130627
  Serious: No
  Sender: FDA-Public Use
  Company Number: US-AMGEN-USASP2012035620

PATIENT
  Age: 38 Year
  Sex: Male

DRUGS (9)
  1. ENBREL [Suspect]
     Indication: PRODUCT USED FOR UNKNOWN INDICATION
     Dosage: 50 mg, qwk
     Route: 058
  2. RESPERAL [Concomitant]
     Dosage: UNK
  3. LISINOPRIL                         /00894002/ [Concomitant]
     Dosage: 20 mg, UNK
  4. ZOCOR [Concomitant]
     Dosage: 10 mg, UNK
  5. OMEPRAZOLE [Concomitant]
     Dosage: 40 mg, UNK
  6. KLONOPIN [Concomitant]
     Dosage: 1 mg, UNK
  7. DEPAKOTE [Concomitant]
     Dosage: 125 mg, UNK
  8. ADVIL                              /00044201/ [Concomitant]
     Dosage: 200 mg, UNK
  9. BYDUREON [Concomitant]
     Dosage: UNK

REACTIONS (2)
  - Wheezing [Unknown]
  - Anxiety [Unknown]
